FAERS Safety Report 7945705-0 (Version None)
Quarter: 2011Q4

REPORT INFORMATION
  Report Type: 
  Country: None (occurrence: None)
  Receive Date: 20111129
  Receipt Date: 20110222
  Transmission Date: 20120403
  Serious: No
  Sender: FDA-Public Use
  Company Number: US-MYLANLABS-2011S1002700

PATIENT
  Sex: Female
  Weight: 77.11 kg

DRUGS (8)
  1. LASIX [Concomitant]
     Indication: FLUID RETENTION
  2. LEVOTHYROXINE SODIUM [Concomitant]
     Indication: HYPOTHYROIDISM
     Dates: start: 20100101
  3. POTASSIUM ACETATE [Concomitant]
  4. COUMADIN [Concomitant]
  5. TOPROL-XL [Concomitant]
     Indication: BLOOD PRESSURE INCREASED
  6. ROBAXIN [Concomitant]
     Indication: MUSCLE SPASMS
  7. CLONAZEPAM [Suspect]
     Indication: PANIC DISORDER
     Route: 048
     Dates: start: 20100101, end: 20110128
  8. LISINOPRIL [Concomitant]
     Indication: BLOOD PRESSURE INCREASED

REACTIONS (7)
  - SOMNOLENCE [None]
  - AGITATION [None]
  - DECREASED APPETITE [None]
  - ABNORMAL BEHAVIOUR [None]
  - HALLUCINATION [None]
  - AMNESIA [None]
  - DYSARTHRIA [None]
